FAERS Safety Report 6651175-5 (Version None)
Quarter: 2010Q1

REPORT INFORMATION
  Report Type: 
  Country: None (occurrence: None)
  Receive Date: 20100322
  Receipt Date: 20100309
  Transmission Date: 20100710
  Serious: Yes (Other)
  Sender: FDA-Public Use
  Company Number: B0640640A

PATIENT
  Age: 69 Year
  Sex: Male

DRUGS (5)
  1. CHLORAMBUCIL (FORMULATION UNKNOWN) (GENERIC) (CHLORAMBUCIL) [Suspect]
     Indication: HODGKIN'S DISEASE
  2. PREDNISOLONE [Suspect]
     Indication: HODGKIN'S DISEASE
  3. VINBLASTINE SULFATE [Suspect]
     Indication: HODGKIN'S DISEASE
  4. PROCARBAZINE HYDROCHLORIDE [Suspect]
     Indication: HODGKIN'S DISEASE
  5. STEROID [Concomitant]

REACTIONS (8)
  - ANAEMIA [None]
  - APLASIA PURE RED CELL [None]
  - APOPTOSIS [None]
  - ERYTHEMA INFECTIOSUM [None]
  - INTERSTITIAL LUNG DISEASE [None]
  - NIGHT SWEATS [None]
  - RETICULOCYTOPENIA [None]
  - WEIGHT DECREASED [None]
